FAERS Safety Report 4608483-9 (Version None)
Quarter: 2005Q1

REPORT INFORMATION
  Report Type: 
  Country: None (occurrence: None)
  Receive Date: 20050311
  Receipt Date: 20050311
  Transmission Date: 20050727
  Serious: Yes (Life-Threatening)
  Sender: FDA-Public Use
  Company Number: None

PATIENT
  Sex: Male

DRUGS (1)
  1. DROTRECOGIN [Suspect]
     Indication: SEPSIS
     Dosage: 1680  MCG HOUR INTRAVENOUS
     Route: 042
     Dates: start: 20041231, end: 20050102

REACTIONS (3)
  - EPISTAXIS [None]
  - GASTROINTESTINAL HAEMORRHAGE [None]
  - HAEMORRHAGE [None]
